FAERS Safety Report 7296305-X (Version None)
Quarter: 2011Q1

REPORT INFORMATION
  Report Type: 
  Country: None (occurrence: None)
  Receive Date: 20110216
  Receipt Date: 20110208
  Transmission Date: 20110831
  Serious: Yes (Other)
  Sender: FDA-Public Use
  Company Number: NO-JNJFOC-20110202397

PATIENT
  Sex: Male

DRUGS (5)
  1. URSO FALK [Concomitant]
     Indication: CHOLANGITIS SCLEROSING
     Route: 048
  2. PENTASA [Concomitant]
     Indication: COLITIS ULCERATIVE
     Route: 065
  3. REMICADE [Suspect]
     Indication: COLITIS ULCERATIVE
     Route: 042
  4. REMICADE [Suspect]
     Route: 042
  5. LEVOTHYROXINE SODIUM [Concomitant]
     Route: 048

REACTIONS (5)
  - URTICARIA [None]
  - PRURITUS GENERALISED [None]
  - DYSPNOEA [None]
  - INFUSION RELATED REACTION [None]
  - TACHYCARDIA [None]
